FAERS Safety Report 9196410 (Version 1)
Quarter: 2013Q1

REPORT INFORMATION
  Report Type: Spontaneous
  Country: US (occurrence: None)
  Receive Date: 20120709
  Receipt Date: 20120709
  Transmission Date: 20140127
  Serious: No
  Sender: FDA-Public Use
  Company Number: 2012HGS-003521

PATIENT
  Age: 72 Year
  Sex: Female
  Weight: 90.72 kg

DRUGS (12)
  1. BENLYSTA [Suspect]
     Indication: SYSTEMIC LUPUS ERYTHEMATOSUS
     Dates: start: 20120411
  2. PREDNISONE [Concomitant]
  3. PLAQUENIL [Concomitant]
  4. PROCARDIA [Concomitant]
  5. PROTONIX [Concomitant]
  6. BENICAR [Concomitant]
  7. KLOR-CON [Concomitant]
  8. ASPIRIN [Concomitant]
  9. SULFASALAZINE [Concomitant]
  10. METHOTREXATE [Concomitant]
  11. SIMVASTATIN [Concomitant]
  12. REQUIP [Concomitant]

REACTIONS (1)
  - Insomnia [None]
